FAERS Safety Report 6516577-6 (Version None)
Quarter: 2009Q4

REPORT INFORMATION
  Report Type: 
  Country: None (occurrence: None)
  Receive Date: 20091223
  Receipt Date: 20091217
  Transmission Date: 20100525
  Serious: Yes (Hospitalization)
  Sender: FDA-Public Use
  Company Number: US-ELI_LILLY_AND_COMPANY-US200912004392

PATIENT
  Sex: Male

DRUGS (2)
  1. HUMULIN R [Suspect]
     Indication: DIABETES MELLITUS
     Dosage: 4 U, EACH EVENING
  2. METFORMIN HCL [Concomitant]
     Dosage: 500 MG, 2/D

REACTIONS (2)
  - DEMENTIA ALZHEIMER'S TYPE [None]
  - FALL [None]
